FAERS Safety Report 9468851 (Version 1)
Quarter: 2013Q3

REPORT INFORMATION
  Report Type: Spontaneous
  Country: DE (occurrence: DE)
  Receive Date: 20130821
  Receipt Date: 20130821
  Transmission Date: 20140515
  Serious: Yes (Other)
  Sender: FDA-Public Use
  Company Number: GXKR2013DE002728

PATIENT
  Sex: Female

DRUGS (1)
  1. BISOPROLOL 1A PHARMA [Suspect]
     Route: 048

REACTIONS (1)
  - Circulatory collapse [Unknown]
